FAERS Safety Report 16723727 (Version 1)
Quarter: 2019Q3

REPORT INFORMATION
  Report Type: Spontaneous
  Country: CA (occurrence: CA)
  Receive Date: 20190821
  Receipt Date: 20190821
  Transmission Date: 20191005
  Serious: Yes (Hospitalization, Other)
  Sender: FDA-Public Use
  Company Number: CA-AUROBINDO-AUR-APL-2019-054229

PATIENT

DRUGS (2)
  1. FOSAMAX [Suspect]
     Active Substance: ALENDRONATE SODIUM
     Indication: OSTEOPOROSIS
     Dosage: UNK
     Route: 065
  2. ALENDRONIC ACID [Suspect]
     Active Substance: ALENDRONIC ACID
     Indication: OSTEOPOROSIS
     Dosage: 70.0 MILLIGRAM, EVERY WEEK
     Route: 048

REACTIONS (6)
  - Fall [Unknown]
  - Haemoglobin decreased [Unknown]
  - Atelectasis [Unknown]
  - Dermatitis allergic [Unknown]
  - Femur fracture [Unknown]
  - Fracture nonunion [Unknown]
